FAERS Safety Report 5839414-1 (Version None)
Quarter: 2008Q3

REPORT INFORMATION
  Report Type: 
  Country: None (occurrence: None)
  Receive Date: 20080806
  Receipt Date: 20080722
  Transmission Date: 20090109
  Serious: Yes (Hospitalization)
  Sender: FDA-Public Use
  Company Number: 2008AL009111

PATIENT
  Sex: Female

DRUGS (3)
  1. DIAZEPAM TAB [Suspect]
     Dosage: 130 MG; X1
  2. OLANZAPINE [Concomitant]
  3. CLOZAPINE [Concomitant]

REACTIONS (2)
  - OVERDOSE [None]
  - SOMNOLENCE [None]
